FAERS Safety Report 24192811 (Version 2)
Quarter: 2024Q3

REPORT INFORMATION
  Report Type: Report from Study
  Country: US (occurrence: US)
  Receive Date: 20240809
  Receipt Date: 20240904
  Transmission Date: 20241017
  Serious: Yes (Other)
  Sender: ABBVIE
  Company Number: US-ABBVIE-5870971

PATIENT
  Sex: Female

DRUGS (1)
  1. SKYRIZI [Suspect]
     Active Substance: RISANKIZUMAB-RZAA
     Indication: Psoriasis
     Route: 058
     Dates: start: 20240321

REACTIONS (6)
  - Omphalitis [Not Recovered/Not Resolved]
  - Spinal fracture [Recovering/Resolving]
  - Helicobacter infection [Recovering/Resolving]
  - Fall [Recovering/Resolving]
  - Infection [Unknown]
  - Umbilical haemorrhage [Not Recovered/Not Resolved]

NARRATIVE: CASE EVENT DATE: 20240101
